FAERS Safety Report 12378952 (Version 1)
Quarter: 2016Q2

REPORT INFORMATION
  Report Type: Report from Study
  Country: CO (occurrence: CO)
  Receive Date: 20160517
  Receipt Date: 20160517
  Transmission Date: 20160815
  Serious: Yes (Hospitalization)
  Sender: FDA-Public Use
  Company Number: CO-JNJFOC-20160513622

PATIENT
  Age: 30 Year
  Sex: Male

DRUGS (1)
  1. RISPERDAL CONSTA [Suspect]
     Active Substance: RISPERIDONE
     Indication: SCHIZOPHRENIA
     Route: 030
     Dates: start: 20160408

REACTIONS (2)
  - Hallucination, auditory [Not Recovered/Not Resolved]
  - Obsessive thoughts [Not Recovered/Not Resolved]

NARRATIVE: CASE EVENT DATE: 20160426
